FAERS Safety Report 17414234 (Version 13)
Quarter: 2021Q2

REPORT INFORMATION
  Report Type: Report from Study
  Country: JP (occurrence: JP)
  Receive Date: 20200213
  Receipt Date: 20210510
  Transmission Date: 20210716
  Serious: Yes (Hospitalization)
  Sender: FDA-Public Use
  Company Number: JP-ROCHE-2542516

PATIENT
  Age: 57 Year
  Sex: Male
  Weight: 62 kg

DRUGS (78)
  1. ETHYL ICOSAPENTATE [Concomitant]
     Active Substance: ICOSAPENT ETHYL
     Indication: DYSLIPIDAEMIA
     Dates: end: 20200131
  2. APREPITANT. [Concomitant]
     Active Substance: APREPITANT
     Dates: start: 20191108, end: 20191108
  3. APREPITANT. [Concomitant]
     Active Substance: APREPITANT
     Dates: start: 20200107, end: 20200107
  4. APREPITANT. [Concomitant]
     Active Substance: APREPITANT
     Dates: start: 20191203, end: 20191203
  5. APREPITANT. [Concomitant]
     Active Substance: APREPITANT
     Dates: start: 20200225, end: 20200225
  6. VONOPRAZAN FUMARATE [Concomitant]
     Active Substance: VONOPRAZAN FUMARATE
     Dates: start: 20200207
  7. PALONOSETRON HYDROCHLORIDE. [Concomitant]
     Active Substance: PALONOSETRON HYDROCHLORIDE
     Dates: start: 20200324, end: 20200324
  8. BETAMETHASONE BUTYRATE PROPIONATE [Concomitant]
     Active Substance: BETAMETHASONE BUTYRATE PROPIONATE
     Dates: start: 20200301, end: 20200519
  9. ACETAMINOPHEN. [Concomitant]
     Active Substance: ACETAMINOPHEN
     Dosage: CYCLE 1 DAY 15?START TIME: 10:40?END TIME: 10:40
     Route: 048
     Dates: start: 20191119, end: 20191119
  10. ACETAMINOPHEN. [Concomitant]
     Active Substance: ACETAMINOPHEN
     Route: 048
     Dates: start: 20200421, end: 20200421
  11. ACETAMINOPHEN. [Concomitant]
     Active Substance: ACETAMINOPHEN
     Route: 048
     Dates: start: 20201006, end: 20201006
  12. DIPHENHYDRAMINE HYDROCHLORIDE. [Concomitant]
     Active Substance: DIPHENHYDRAMINE HYDROCHLORIDE
     Dosage: CYCLE 4 DAY 1?START TIME: 10:59?END TIME: 10:59
     Route: 048
     Dates: start: 20200225, end: 20200225
  13. DIPHENHYDRAMINE HYDROCHLORIDE. [Concomitant]
     Active Substance: DIPHENHYDRAMINE HYDROCHLORIDE
     Dosage: START TIME: 10:36 ?STOP TIME: 10:36?MAINTENANCE WEEK 09
     Route: 048
     Dates: start: 20200811, end: 20200811
  14. DIPHENHYDRAMINE HYDROCHLORIDE. [Concomitant]
     Active Substance: DIPHENHYDRAMINE HYDROCHLORIDE
     Dates: start: 20200324, end: 20200324
  15. DIPHENHYDRAMINE HYDROCHLORIDE. [Concomitant]
     Active Substance: DIPHENHYDRAMINE HYDROCHLORIDE
     Dates: start: 20200421, end: 20200421
  16. METHYLPREDNISOLONE SODIUM SUCCINATE. [Concomitant]
     Active Substance: METHYLPREDNISOLONE SODIUM SUCCINATE
     Dosage: CYCLE 2 DAY 1?START TIME: 10:00?END TIME: 10:15
     Route: 042
     Dates: start: 20191203, end: 20191203
  17. METHYLPREDNISOLONE SODIUM SUCCINATE. [Concomitant]
     Active Substance: METHYLPREDNISOLONE SODIUM SUCCINATE
     Route: 042
     Dates: start: 20201201, end: 20201201
  18. BENDAMUSTINE [Suspect]
     Active Substance: BENDAMUSTINE
     Indication: FOLLICULAR LYMPHOMA
     Dosage: ADMINISTERED ON DAYS 1 AND 2 FOR CYCLES 1?6 AT A DOSE OF 90 MG/M2/DAY, FOR SIX 28?DAY CYCLES.?DATE O
     Route: 042
     Dates: start: 20191107
  19. APREPITANT. [Concomitant]
     Active Substance: APREPITANT
     Dates: start: 20200226, end: 20200227
  20. ACICLOVIR [Concomitant]
     Active Substance: ACYCLOVIR
     Dates: start: 20200207
  21. LEVOFLOXACIN HEMIHYDRATE [Concomitant]
     Active Substance: LEVOFLOXACIN
     Indication: INFECTION PROPHYLAXIS
     Dates: start: 20191217, end: 20191220
  22. LEVOFLOXACIN HEMIHYDRATE [Concomitant]
     Active Substance: LEVOFLOXACIN
     Dates: start: 20200421, end: 20200427
  23. ACETAMINOPHEN. [Concomitant]
     Active Substance: ACETAMINOPHEN
     Indication: PREMEDICATION
     Dosage: CYCLE 1 DAY 1?START TIME: 11:45?END TIME: 11:45
     Route: 048
     Dates: start: 20191106, end: 20191106
  24. ACETAMINOPHEN. [Concomitant]
     Active Substance: ACETAMINOPHEN
     Dosage: CYCLE 1 DAY 8?START TIME: 11:15?END TIME: 11:15
     Route: 048
     Dates: start: 20191113, end: 20191113
  25. DIPHENHYDRAMINE HYDROCHLORIDE. [Concomitant]
     Active Substance: DIPHENHYDRAMINE HYDROCHLORIDE
     Indication: PREMEDICATION
     Dosage: CYCLE 1 DAY 1?START TIME: 11:45?END TIME: 11:45
     Route: 048
     Dates: start: 20191106, end: 20191106
  26. DIPHENHYDRAMINE HYDROCHLORIDE. [Concomitant]
     Active Substance: DIPHENHYDRAMINE HYDROCHLORIDE
     Dosage: MAINTENANCE WEEK 01?START TIME:12:54?END TIME:12:54
     Route: 048
     Dates: start: 20200616, end: 20200616
  27. DIPHENHYDRAMINE HYDROCHLORIDE. [Concomitant]
     Active Substance: DIPHENHYDRAMINE HYDROCHLORIDE
     Dates: start: 20200112, end: 20200112
  28. METHYLPREDNISOLONE SODIUM SUCCINATE. [Concomitant]
     Active Substance: METHYLPREDNISOLONE SODIUM SUCCINATE
     Dosage: CYCLE 3 DAY 1?START TIME: 14:10
     Route: 042
     Dates: start: 20200107, end: 20200107
  29. PEGFILGRASTIM [Concomitant]
     Active Substance: PEGFILGRASTIM
     Dates: start: 20200424, end: 20200424
  30. APREPITANT. [Concomitant]
     Active Substance: APREPITANT
     Indication: PROPHYLAXIS OF NAUSEA AND VOMITING
     Dates: start: 20191107, end: 20191107
  31. APREPITANT. [Concomitant]
     Active Substance: APREPITANT
     Dates: start: 20200108, end: 20200109
  32. APREPITANT. [Concomitant]
     Active Substance: APREPITANT
     Dates: start: 20200324, end: 20200324
  33. APREPITANT. [Concomitant]
     Active Substance: APREPITANT
     Dates: start: 20200421, end: 20200421
  34. APREPITANT. [Concomitant]
     Active Substance: APREPITANT
     Dates: start: 20200325, end: 20200326
  35. PALONOSETRON HYDROCHLORIDE. [Concomitant]
     Active Substance: PALONOSETRON HYDROCHLORIDE
     Dates: start: 20200225, end: 20200225
  36. SULFAMETHOXAZOLE/TRIMETHOPRIM [Concomitant]
     Active Substance: SULFAMETHOXAZOLE\TRIMETHOPRIM
     Indication: INFECTION PROPHYLAXIS
     Dates: start: 20191106, end: 20200131
  37. BETAMETHASONE BUTYRATE PROPIONATE [Concomitant]
     Active Substance: BETAMETHASONE BUTYRATE PROPIONATE
     Indication: VASCULITIS
     Dates: start: 20200108, end: 20200201
  38. ACETAMINOPHEN. [Concomitant]
     Active Substance: ACETAMINOPHEN
     Route: 048
     Dates: start: 20201201, end: 20201201
  39. DIPHENHYDRAMINE HYDROCHLORIDE. [Concomitant]
     Active Substance: DIPHENHYDRAMINE HYDROCHLORIDE
     Dates: start: 20200610, end: 20200610
  40. INFLUENZA VACCINE [Concomitant]
     Active Substance: INFLUENZA VIRUS VACCINE
     Indication: INFLUENZA IMMUNISATION
     Dates: start: 20201006, end: 20201006
  41. LENOGRASTIM [Concomitant]
     Active Substance: LENOGRASTIM
     Dates: start: 20200218, end: 20200221
  42. LENOGRASTIM [Concomitant]
     Active Substance: LENOGRASTIM
     Dates: start: 20191217, end: 20191217
  43. VONOPRAZAN FUMARATE [Concomitant]
     Active Substance: VONOPRAZAN FUMARATE
     Dates: start: 20191106, end: 20200131
  44. ACETAMINOPHEN. [Concomitant]
     Active Substance: ACETAMINOPHEN
     Route: 048
     Dates: start: 20210126, end: 20210126
  45. DIPHENHYDRAMINE HYDROCHLORIDE. [Concomitant]
     Active Substance: DIPHENHYDRAMINE HYDROCHLORIDE
     Dosage: CYCLE 1 DAY 8?START TIME: 11:15?END TIME: 11:15
     Route: 048
     Dates: start: 20191113, end: 20191113
  46. DIPHENHYDRAMINE HYDROCHLORIDE. [Concomitant]
     Active Substance: DIPHENHYDRAMINE HYDROCHLORIDE
     Dosage: CYCLE 2 DAY 1?START TIME: 10:51?END TIME: 10:51
     Route: 048
     Dates: start: 20191203, end: 20191203
  47. APREPITANT. [Concomitant]
     Active Substance: APREPITANT
     Dates: start: 20191204, end: 20191204
  48. METOCLOPRAMIDE. [Concomitant]
     Active Substance: METOCLOPRAMIDE
     Indication: PROPHYLAXIS OF NAUSEA AND VOMITING
     Dates: start: 20191110
  49. PALONOSETRON HYDROCHLORIDE. [Concomitant]
     Active Substance: PALONOSETRON HYDROCHLORIDE
     Indication: PROPHYLAXIS OF NAUSEA AND VOMITING
     Dates: start: 20191107, end: 20191107
  50. SULFAMETHOXAZOLE/TRIMETHOPRIM [Concomitant]
     Active Substance: SULFAMETHOXAZOLE\TRIMETHOPRIM
     Dates: start: 20200207
  51. ACETAMINOPHEN. [Concomitant]
     Active Substance: ACETAMINOPHEN
     Dosage: CYCLE 3 DAY 1?START TIME: 13:37?END TIME: 13:37
     Route: 048
     Dates: start: 20200107, end: 20200107
  52. ACETAMINOPHEN. [Concomitant]
     Active Substance: ACETAMINOPHEN
     Dosage: CYCLE 4 DAY 1?START TIME: 10:59?END TIME: 10:59
     Route: 048
     Dates: start: 20200225, end: 20200225
  53. DIPHENHYDRAMINE HYDROCHLORIDE. [Concomitant]
     Active Substance: DIPHENHYDRAMINE HYDROCHLORIDE
     Dates: start: 20210323, end: 20210323
  54. SP TROCHES [Concomitant]
     Active Substance: DEQUALINIUM CHLORIDE
     Indication: OROPHARYNGEAL PAIN
     Dates: start: 20210323
  55. OBINUTUZUMAB. [Suspect]
     Active Substance: OBINUTUZUMAB
     Indication: FOLLICULAR LYMPHOMA
     Dosage: 1000 MG IV INFUSION, ADMINISTERED ON DAY 1, 8 AND 15 DURING CYCLE 1, AND ON DAY 1 OF SUBSEQUENT CYCL
     Route: 042
     Dates: start: 20191106
  56. LENOGRASTIM [Concomitant]
     Active Substance: LENOGRASTIM
     Indication: NEUTROPENIA
     Dates: start: 20200212, end: 20200213
  57. PALONOSETRON HYDROCHLORIDE. [Concomitant]
     Active Substance: PALONOSETRON HYDROCHLORIDE
     Dates: start: 20191203, end: 20191203
  58. ACETAMINOPHEN. [Concomitant]
     Active Substance: ACETAMINOPHEN
     Dosage: MAINTENANCE WEEK 01?START TIME:12:54?END TIME:12:54
     Route: 048
     Dates: start: 20200324, end: 20200324
  59. METHYLPREDNISOLONE SODIUM SUCCINATE. [Concomitant]
     Active Substance: METHYLPREDNISOLONE SODIUM SUCCINATE
     Dosage: MAINTENANCE WEEK 01?START TIME:13:13?END TIME:13:30
     Route: 042
     Dates: start: 20200616, end: 20200616
  60. LANSOPRAZOLE. [Concomitant]
     Active Substance: LANSOPRAZOLE
     Dates: start: 20200131, end: 20200206
  61. PEGFILGRASTIM [Concomitant]
     Active Substance: PEGFILGRASTIM
     Dates: start: 20200110, end: 20200110
  62. PEGFILGRASTIM [Concomitant]
     Active Substance: PEGFILGRASTIM
     Dates: start: 20200327, end: 20200327
  63. HEPARINOID [Concomitant]
     Active Substance: CHONDROITIN SULFATE (BOVINE)
     Indication: DRY SKIN
     Dates: start: 20200908, end: 20201006
  64. ACETAMINOPHEN. [Concomitant]
     Active Substance: ACETAMINOPHEN
     Dosage: CYCLE 2 DAY 1?START TIME: 10:15?END TIME: 10:15
     Route: 048
     Dates: start: 20191203, end: 20191203
  65. ACETAMINOPHEN. [Concomitant]
     Active Substance: ACETAMINOPHEN
     Route: 048
     Dates: start: 20210323, end: 20210323
  66. DIPHENHYDRAMINE HYDROCHLORIDE. [Concomitant]
     Active Substance: DIPHENHYDRAMINE HYDROCHLORIDE
     Dosage: CYCLE 1 DAY 15?START TIME: 10:40?END TIME: 10:40
     Route: 048
     Dates: start: 20191119, end: 20191119
  67. DIPHENHYDRAMINE HYDROCHLORIDE. [Concomitant]
     Active Substance: DIPHENHYDRAMINE HYDROCHLORIDE
     Dosage: CYCLE 3 DAY 1?START TIME: 13:37?END TIME: 13:37
     Route: 048
     Dates: start: 20200107, end: 20200107
  68. METHYLPREDNISOLONE SODIUM SUCCINATE. [Concomitant]
     Active Substance: METHYLPREDNISOLONE SODIUM SUCCINATE
     Indication: PREMEDICATION
     Dosage: CYCLE 1 DAY 1?START TIME: 10:55?END TIME: 11:15
     Route: 042
     Dates: start: 20191106, end: 20191106
  69. METHYLPREDNISOLONE SODIUM SUCCINATE. [Concomitant]
     Active Substance: METHYLPREDNISOLONE SODIUM SUCCINATE
     Dosage: START TIME: 11:10?STOP TIME: 11:15?MAINTENANCE WEEK 09
     Route: 042
     Dates: start: 20200811, end: 20200811
  70. PEGFILGRASTIM [Concomitant]
     Active Substance: PEGFILGRASTIM
     Indication: PROPHYLAXIS
     Dates: start: 20200228, end: 20200228
  71. MAGNESIUM OXIDE. [Concomitant]
     Active Substance: MAGNESIUM OXIDE
     Indication: CONSTIPATION PROPHYLAXIS
     Dates: start: 20200226
  72. RIVAROXABAN [Suspect]
     Active Substance: RIVAROXABAN
     Indication: PULMONARY EMBOLISM
     Route: 065
     Dates: start: 20191114, end: 20200131
  73. LENOGRASTIM [Concomitant]
     Active Substance: LENOGRASTIM
     Dates: start: 20200221, end: 20200222
  74. ACICLOVIR [Concomitant]
     Active Substance: ACYCLOVIR
     Indication: INFECTION PROPHYLAXIS
     Dates: start: 20191106, end: 20200131
  75. PALONOSETRON HYDROCHLORIDE. [Concomitant]
     Active Substance: PALONOSETRON HYDROCHLORIDE
     Dates: start: 20200107, end: 20200107
  76. ACETAMINOPHEN. [Concomitant]
     Active Substance: ACETAMINOPHEN
     Dosage: START TIME: 10:36?STOP TIME: 10:36?MAINTEMANCE WEEK 09
     Route: 048
     Dates: start: 20200811, end: 20200811
  77. DIPHENHYDRAMINE HYDROCHLORIDE. [Concomitant]
     Active Substance: DIPHENHYDRAMINE HYDROCHLORIDE
     Dates: start: 20210126, end: 20210126
  78. DIPHENHYDRAMINE. [Concomitant]
     Active Substance: DIPHENHYDRAMINE
     Indication: PRURITUS
     Dates: start: 20200908, end: 20201006

REACTIONS (1)
  - Lower gastrointestinal haemorrhage [Recovered/Resolved]

NARRATIVE: CASE EVENT DATE: 20200131
